FAERS Safety Report 18578328 (Version 1)
Quarter: 2020Q4

REPORT INFORMATION
  Report Type: Spontaneous
  Country: CN (occurrence: CN)
  Receive Date: 20201204
  Receipt Date: 20201204
  Transmission Date: 20210114
  Serious: Yes (Death, Life-Threatening, Hospitalization, Other)
  Sender: FDA-Public Use
  Company Number: CN-ROCHE-2725250

PATIENT
  Age: 49 Year
  Sex: Female
  Weight: 50 kg

DRUGS (1)
  1. XELODA [Suspect]
     Active Substance: CAPECITABINE
     Indication: ADENOCARCINOMA OF COLON
     Route: 048
     Dates: start: 20200918, end: 20201005

REACTIONS (11)
  - Cardiac failure [Not Recovered/Not Resolved]
  - Hypotension [Not Recovered/Not Resolved]
  - Tachypnoea [Not Recovered/Not Resolved]
  - Pneumonia aspiration [Unknown]
  - Myelosuppression [Fatal]
  - Septic shock [Unknown]
  - Electrolyte imbalance [Unknown]
  - Coronary artery disease [Unknown]
  - Multiple organ dysfunction syndrome [Unknown]
  - Hypoproteinaemia [Unknown]
  - Enteritis infectious [Unknown]

NARRATIVE: CASE EVENT DATE: 20201001
